FAERS Safety Report 26108670 (Version 1)
Quarter: 2025Q4

REPORT INFORMATION
  Report Type: Spontaneous
  Country: US (occurrence: None)
  Receive Date: 20251128
  Receipt Date: 20251128
  Transmission Date: 20260117
  Serious: Yes (Other)
  Sender: FDA-CTU
  Company Number: None

PATIENT
  Age: 63 Year
  Sex: Female

DRUGS (1)
  1. ADALIMUMAB-ADAZ [Suspect]
     Active Substance: ADALIMUMAB-ADAZ
     Indication: Rheumatoid arthritis
     Dosage: 40 MG EVERY OTHER WEEKS SUBCUTANEOUS
     Route: 058
     Dates: start: 20251016, end: 20251030

REACTIONS (4)
  - Dyspnoea [None]
  - Dizziness [None]
  - Peripheral swelling [None]
  - Drug hypersensitivity [None]

NARRATIVE: CASE EVENT DATE: 20251128
